FAERS Safety Report 6843640-2 (Version None)
Quarter: 2010Q2

REPORT INFORMATION
  Report Type: 
  Country: None (occurrence: None)
  Receive Date: 20100629
  Receipt Date: 20100409
  Transmission Date: 20101027
  Serious: No
  Sender: FDA-Public Use
  Company Number: US-WYE-H14551110

PATIENT
  Age: 64 Year
  Sex: Female
  Weight: 124.85 kg

DRUGS (4)
  1. PRISTIQ [Suspect]
     Indication: DEPRESSION
     Dosage: 50 MG, FREQUENCY NOT SPECIFIED
     Dates: start: 20100406, end: 20100408
  2. DIOVAN [Concomitant]
  3. CARTIA XT [Concomitant]
  4. PRILOSEC (OMEPRAZOLE) [Concomitant]

REACTIONS (7)
  - DISORIENTATION [None]
  - DIZZINESS [None]
  - FEELING ABNORMAL [None]
  - HEART RATE INCREASED [None]
  - NAUSEA [None]
  - UNEVALUABLE EVENT [None]
  - VISION BLURRED [None]
